FAERS Safety Report 20655507 (Version 3)
Quarter: 2022Q2

REPORT INFORMATION
  Report Type: Report from Study
  Country: US (occurrence: US)
  Receive Date: 20220330
  Receipt Date: 20220609
  Transmission Date: 20220721
  Serious: Yes (Hospitalization, Other)
  Sender: FDA-Public Use
  Company Number: US-PFIZER INC-202200476027

PATIENT
  Age: 18 Year
  Sex: Male
  Weight: 83.3 kg

DRUGS (21)
  1. VINCRISTINE SULFATE [Suspect]
     Active Substance: VINCRISTINE SULFATE
     Indication: Acute lymphocytic leukaemia
     Dosage: 2 MG, ON DAY 1,29 AND 57 OF EACH CYCLE
     Route: 042
     Dates: start: 20200923
  2. VINCRISTINE SULFATE [Suspect]
     Active Substance: VINCRISTINE SULFATE
     Dosage: 2 MG, ONCE
     Route: 042
     Dates: start: 20211005
  3. METHOTREXATE SODIUM [Suspect]
     Active Substance: METHOTREXATE SODIUM
     Indication: Acute lymphocytic leukaemia
     Dosage: 15 MG, ONCE (OF DAY 1 OF EACH CYCLE)
     Route: 037
     Dates: start: 20201007
  4. METHOTREXATE [Suspect]
     Active Substance: METHOTREXATE
     Indication: Acute lymphocytic leukaemia
     Dosage: 22.5 MG, WEEKLY
     Route: 048
     Dates: start: 20211012, end: 20211216
  5. METHOTREXATE [Suspect]
     Active Substance: METHOTREXATE
     Dosage: 50% DOSE REDUCTION
     Route: 048
     Dates: start: 20211230
  6. METHOTREXATE [Suspect]
     Active Substance: METHOTREXATE
     Dosage: 8.75 MG, WEEKLY
     Route: 048
     Dates: start: 20220222, end: 20220304
  7. METHOTREXATE [Suspect]
     Active Substance: METHOTREXATE
     Dosage: 8.75 MG, WEEKLY
     Route: 048
     Dates: start: 20220329, end: 20220509
  8. RUXOLITINIB [Suspect]
     Active Substance: RUXOLITINIB
     Indication: Acute lymphocytic leukaemia
     Dosage: 100 MG, BID (FOR 14 DAYS)
     Route: 048
     Dates: start: 20211005
  9. RUXOLITINIB [Suspect]
     Active Substance: RUXOLITINIB
     Dosage: 100 MG, QD FOR 14DAYS ON DAYS 1-14, 29-42, 57-70
     Route: 048
     Dates: start: 20211228, end: 20220304
  10. RUXOLITINIB [Suspect]
     Active Substance: RUXOLITINIB
     Dosage: 95 MG, QD FOR 14 DAYS ON DAYS 1-14, 29-42, AND 57-70
     Route: 048
     Dates: start: 20220322, end: 20220502
  11. MERCAPTOPURINE [Suspect]
     Active Substance: MERCAPTOPURINE
     Indication: Acute lymphocytic leukaemia
     Dosage: 450 MG, WEEKLY
     Route: 048
     Dates: start: 20211005, end: 20211216
  12. MERCAPTOPURINE [Suspect]
     Active Substance: MERCAPTOPURINE
     Dosage: 50% DOSE REDUCTION
     Route: 048
     Dates: start: 20211230
  13. MERCAPTOPURINE [Suspect]
     Active Substance: MERCAPTOPURINE
     Dosage: 25 MG, QD
     Route: 048
     Dates: start: 20220222, end: 20220304
  14. MERCAPTOPURINE [Suspect]
     Active Substance: MERCAPTOPURINE
     Dosage: 25 MG, QD
     Route: 048
     Dates: start: 20220318, end: 20220509
  15. PREDNISONE [Suspect]
     Active Substance: PREDNISONE
     Indication: Acute lymphocytic leukaemia
     Dosage: 40 MG, FOR 5 DAYS ON DAYS 1-5,29-33, 57-61 OF EACH CYCLE
     Route: 048
     Dates: start: 20210421
  16. PREDNISONE [Suspect]
     Active Substance: PREDNISONE
     Dosage: 40 MG, BID (5-DAY COURSE)
     Route: 048
     Dates: start: 20211005
  17. BACTRIM [Concomitant]
     Active Substance: SULFAMETHOXAZOLE\TRIMETHOPRIM
     Dosage: UNK
     Dates: start: 20200624
  18. ATIVAN [Concomitant]
     Active Substance: LORAZEPAM
     Dosage: UNK
     Dates: start: 20210521
  19. ZOFRAN [Concomitant]
     Active Substance: ONDANSETRON HYDROCHLORIDE
     Dosage: UNK
     Dates: start: 20200502
  20. MIRALAX [Concomitant]
     Active Substance: POLYETHYLENE GLYCOL 3350
     Dosage: UNK
     Dates: start: 20200502
  21. XARELTO [Concomitant]
     Active Substance: RIVAROXABAN
     Dosage: UNK
     Dates: start: 20220304, end: 20220323

REACTIONS (5)
  - Cytomegalovirus infection [Not Recovered/Not Resolved]
  - Cytomegalovirus infection [Recovering/Resolving]
  - Febrile neutropenia [Recovered/Resolved with Sequelae]
  - Clostridium difficile infection [Recovered/Resolved]
  - Aspergillus infection [Recovering/Resolving]

NARRATIVE: CASE EVENT DATE: 20211215
